FAERS Safety Report 7921093-0 (Version None)
Quarter: 2011Q4

REPORT INFORMATION
  Report Type: 
  Country: None (occurrence: None)
  Receive Date: 20111117
  Receipt Date: 20111108
  Transmission Date: 20120403
  Serious: Yes (Life-Threatening, Hospitalization)
  Sender: FDA-Public Use
  Company Number: DE-MERCK-1108DEU00033

PATIENT
  Age: 68 Year
  Sex: Male
  Weight: 74 kg

DRUGS (11)
  1. ASPIRIN [Concomitant]
     Route: 065
  2. DABIGATRAN ETEXILATE [Suspect]
     Indication: ATRIAL FIBRILLATION
     Route: 048
     Dates: start: 20101001, end: 20100101
  3. CLOPIDOGREL [Concomitant]
     Route: 065
  4. AMIODARONE HCL [Suspect]
     Indication: ATRIAL FIBRILLATION
     Route: 048
     Dates: start: 20100101
  5. HYDROCHLOROTHIAZIDE [Concomitant]
     Route: 065
  6. VYTORIN [Suspect]
     Indication: HYPERLIPIDAEMIA
     Route: 048
     Dates: start: 20090515, end: 20101221
  7. VYTORIN [Suspect]
     Route: 048
     Dates: start: 20090515, end: 20101221
  8. RAMIPRIL [Concomitant]
     Route: 065
  9. BISOPROLOL [Concomitant]
     Route: 065
  10. PENTAERYTHRITOL TETRANITRATE [Concomitant]
     Route: 065
  11. OMEGA-3 ACID ETHYL ESTERS [Concomitant]
     Route: 048

REACTIONS (6)
  - ATRIAL FIBRILLATION [None]
  - ACUTE MYOCARDIAL INFARCTION [None]
  - ARTERIAL OCCLUSIVE DISEASE [None]
  - MYOPATHY [None]
  - WRONG TECHNIQUE IN DRUG USAGE PROCESS [None]
  - SINUS ARRHYTHMIA [None]
